FAERS Safety Report 17041857 (Version 2)
Quarter: 2019Q4

REPORT INFORMATION
  Report Type: Other
  Country: GB (occurrence: GB)
  Receive Date: 20191118
  Receipt Date: 20191223
  Transmission Date: 20200122
  Serious: Yes (Other)
  Sender: FDA-Public Use
  Company Number: GB-LUPIN HEALTHCARE (UK) LIMITED-2019-07445

PATIENT
  Sex: Male

DRUGS (1)
  1. ABACAVIR/LAMIVUDIN LUPIN 600 MG / 300 MG FILM COATED TABLETS [Suspect]
     Active Substance: ABACAVIR\LAMIVUDINE
     Indication: HIV INFECTION
     Dosage: 1 DOSAGE FORM (600/300 MG), QD (1 TABLET PER NIGHT)
     Route: 065
     Dates: start: 2014

REACTIONS (2)
  - Syncope [Unknown]
  - Fall [Unknown]
